FAERS Safety Report 7372488-8 (Version None)
Quarter: 2011Q1

REPORT INFORMATION
  Report Type: 
  Country: None (occurrence: None)
  Receive Date: 20110324
  Receipt Date: 20110311
  Transmission Date: 20110831
  Serious: Yes (Hospitalization)
  Sender: FDA-Public Use
  Company Number: US-ACTELION-A-US2007-18422

PATIENT

DRUGS (15)
  1. SPIRONOLACTONE [Concomitant]
  2. ASPIRIN [Concomitant]
  3. FOLIC ACID [Concomitant]
  4. TRACLEER [Suspect]
     Dosage: 125 MG, BID
     Route: 048
  5. PEPCID [Concomitant]
  6. SILDENAFIL [Concomitant]
  7. LIPITOR [Concomitant]
  8. FERROUS GLUCONATE [Concomitant]
  9. TRACLEER [Suspect]
     Indication: PULMONARY ARTERIAL HYPERTENSION
     Dosage: 62.5 MG, BID
     Route: 048
     Dates: start: 20070820
  10. VERAPAMIL [Concomitant]
  11. COUMADIN [Concomitant]
  12. LOSARTAN POTASSIUM [Concomitant]
  13. LASIX [Concomitant]
  14. DIGOXIN [Concomitant]
  15. CALCIUM CHANNEL BLOCKERS [Concomitant]

REACTIONS (29)
  - NAUSEA [None]
  - HAEMATOCHEZIA [None]
  - FATIGUE [None]
  - BLOOD POTASSIUM DECREASED [None]
  - DYSURIA [None]
  - DYSPNOEA [None]
  - UROSEPSIS [None]
  - CLOSTRIDIUM DIFFICILE COLITIS [None]
  - PYELONEPHRITIS [None]
  - CLOSTRIDIUM TEST POSITIVE [None]
  - DYSGEUSIA [None]
  - URINARY TRACT INFECTION BACTERIAL [None]
  - URINE ODOUR ABNORMAL [None]
  - SEPSIS [None]
  - PSEUDOMEMBRANOUS COLITIS [None]
  - CONSTIPATION [None]
  - DIABETES MELLITUS [None]
  - PYREXIA [None]
  - CHILLS [None]
  - CHEST PAIN [None]
  - BACK PAIN [None]
  - WEIGHT DECREASED [None]
  - KIDNEY INFECTION [None]
  - VOMITING [None]
  - DIARRHOEA [None]
  - ASTHENIA [None]
  - DEHYDRATION [None]
  - ABDOMINAL PAIN [None]
  - ABDOMINAL DISTENSION [None]
